FAERS Safety Report 19743276 (Version 1)
Quarter: 2021Q3

REPORT INFORMATION
  Report Type: Spontaneous
  Country: US (occurrence: US)
  Receive Date: 20210825
  Receipt Date: 20210825
  Transmission Date: 20211014
  Serious: No
  Sender: FDA-Public Use
  Company Number: US-SA-2021SA277786

PATIENT
  Age: 11 Year
  Sex: Female

DRUGS (1)
  1. DUPIXENT [Suspect]
     Active Substance: DUPILUMAB
     Indication: DERMATITIS ALLERGIC
     Route: 058
     Dates: start: 202105

REACTIONS (4)
  - Blood glucose increased [Unknown]
  - General physical condition abnormal [Unknown]
  - Product use in unapproved indication [Unknown]
  - Mental status changes [Unknown]

NARRATIVE: CASE EVENT DATE: 202105
